FAERS Safety Report 4801550-6 (Version None)
Quarter: 2005Q4

REPORT INFORMATION
  Report Type: 
  Country: None (occurrence: None)
  Receive Date: 20051011
  Receipt Date: 20051011
  Transmission Date: 20060501
  Serious: Yes (Hospitalization)
  Sender: FDA-Public Use
  Company Number: None

PATIENT
  Age: 68 Year
  Sex: Male
  Weight: 110.2241 kg

DRUGS (2)
  1. METHADONE 20 MG [Suspect]
     Indication: INTERVERTEBRAL DISC DEGENERATION
     Dosage: PO TID
     Route: 048
     Dates: start: 20050502
  2. METHADONE 20 MG [Suspect]
     Indication: PAIN
     Dosage: PO TID
     Route: 048
     Dates: start: 20050502

REACTIONS (2)
  - BALANCE DISORDER [None]
  - HYPOTENSION [None]
